FAERS Safety Report 17484785 (Version 2)
Quarter: 2020Q2

REPORT INFORMATION
  Report Type: Report from Study
  Country: GB (occurrence: GB)
  Receive Date: 20200302
  Receipt Date: 20200416
  Transmission Date: 20200713
  Serious: Yes (Death, Hospitalization)
  Sender: FDA-Public Use
  Company Number: GB-MYLANLABS-2020M1021967

PATIENT
  Age: 66 Year
  Sex: Female

DRUGS (24)
  1. VINORELBINE [Suspect]
     Active Substance: VINORELBINE TARTRATE
     Dosage: 140 MILLIGRAM, QW
     Route: 048
     Dates: start: 20151113, end: 20151120
  2. OMEPRAZOLE. [Concomitant]
     Active Substance: OMEPRAZOLE
     Indication: GASTRIC POLYPS
     Dosage: 40 MILLIGRAM, QD
     Route: 048
     Dates: end: 20160908
  3. ASPIRIN                            /00002701/ [Concomitant]
     Active Substance: ASPIRIN
     Dosage: 75 MILLIGRAM, QD
     Route: 048
     Dates: end: 20160908
  4. CAPECITABINE. [Suspect]
     Active Substance: CAPECITABINE
     Indication: BREAST CANCER METASTATIC
     Dosage: 3600 MILLIGRAM, QD
     Route: 048
     Dates: start: 20160401, end: 20160603
  5. LAXIDO [Concomitant]
     Active Substance: POLYETHYLENE GLYCOL 3350\POTASSIUM CHLORIDE\SODIUM BICARBONATE\SODIUM CHLORIDE
     Indication: CONSTIPATION
     Dosage: UNK
     Route: 048
     Dates: end: 20160908
  6. PYRIDOXINE [Concomitant]
     Active Substance: PYRIDOXINE
     Dosage: TO MITIGATE POTENTIAL NEUROLOGICAL SIDE EFFECTS OF CHEMOTHERAPY
     Route: 048
     Dates: start: 20160525, end: 20160908
  7. ATORVASTATIN [Concomitant]
     Active Substance: ATORVASTATIN
     Dosage: 40 MILLIGRAM, QD
     Route: 048
     Dates: end: 20160908
  8. OXYCODONE [Concomitant]
     Active Substance: OXYCODONE
     Dosage: AS NEEDED.
     Route: 048
     Dates: end: 20160908
  9. DOCUSATE SODIUM. [Concomitant]
     Active Substance: DOCUSATE SODIUM
     Dosage: 200 MILLIGRAM, QD
     Route: 048
     Dates: end: 20160908
  10. VINORELBINE [Suspect]
     Active Substance: VINORELBINE TARTRATE
     Dosage: 150 MILLIGRAM, QW
     Route: 048
     Dates: start: 20151204, end: 20151223
  11. TRAMADOL. [Concomitant]
     Active Substance: TRAMADOL
     Indication: PAIN
     Dosage: AS NEEDED.
     Route: 048
     Dates: end: 20160908
  12. GABAPENTIN. [Concomitant]
     Active Substance: GABAPENTIN
     Dosage: 600 MILLIGRAM, QD
     Route: 048
     Dates: end: 20160908
  13. DENOSUMAB [Concomitant]
     Active Substance: DENOSUMAB
     Dosage: 120 MILLIGRAM, MONTHLY
     Route: 058
     Dates: end: 20160824
  14. CAPECITABINE. [Suspect]
     Active Substance: CAPECITABINE
     Dosage: 3000 MILLIGRAM, QD
     Route: 048
     Dates: start: 20160331
  15. LAXIDO [Concomitant]
     Active Substance: POLYETHYLENE GLYCOL 3350\POTASSIUM CHLORIDE\SODIUM BICARBONATE\SODIUM CHLORIDE
     Dosage: UNK
     Route: 048
     Dates: start: 20160809, end: 20160809
  16. OMEPRAZOLE. [Concomitant]
     Active Substance: OMEPRAZOLE
     Indication: PROPHYLAXIS
  17. VINORELBINE [Suspect]
     Active Substance: VINORELBINE TARTRATE
     Dosage: 140 MILLIGRAM, QW
     Route: 048
     Dates: start: 20151230, end: 20160115
  18. ADCAL D3 [Concomitant]
     Active Substance: CALCIUM CARBONATE\CHOLECALCIFEROL
     Dosage: 1 DOSAGE FORM, QD
     Route: 048
     Dates: end: 20160908
  19. CAPECITABINE. [Suspect]
     Active Substance: CAPECITABINE
     Indication: BREAST CANCER METASTATIC
     Dosage: 3000 MILLIGRAM, QD
     Route: 048
     Dates: start: 20160603, end: 20160623
  20. TAMOXIFEN [Suspect]
     Active Substance: TAMOXIFEN
     Indication: BREAST CANCER METASTATIC
     Dosage: 20 MILLIGRAM, QD
     Route: 048
     Dates: start: 20160708, end: 20160908
  21. VINORELBINE [Suspect]
     Active Substance: VINORELBINE TARTRATE
     Dosage: 110 MILLIGRAM, QW
     Route: 048
     Dates: start: 20151002, end: 20151030
  22. TRASTUZUMAB. [Suspect]
     Active Substance: TRASTUZUMAB
     Indication: BREAST CANCER METASTATIC
     Dosage: 600 MILLIGRAM, 3XW
     Route: 058
     Dates: start: 20151005
  23. VINORELBINE [Suspect]
     Active Substance: VINORELBINE TARTRATE
     Indication: BREAST CANCER METASTATIC
     Dosage: 150 MILLIGRAM, QW
     Route: 048
     Dates: start: 20160122, end: 20160318
  24. ACYCLOVIR                          /00587301/ [Concomitant]
     Active Substance: ACYCLOVIR
     Dosage: 25 PERCENT, QD
     Route: 061
     Dates: start: 20020108, end: 20020113

REACTIONS (15)
  - Lymphoedema [Recovered/Resolved]
  - Lymphadenopathy [Recovered/Resolved]
  - Oral pain [Recovered/Resolved]
  - Fatigue [Recovered/Resolved]
  - Lower respiratory tract infection [Recovered/Resolved]
  - Dyspnoea exertional [Recovered/Resolved]
  - Dizziness [Not Recovered/Not Resolved]
  - Constipation [Recovered/Resolved]
  - Palmar-plantar erythrodysaesthesia syndrome [Unknown]
  - Hepatic pain [Recovered/Resolved]
  - Musculoskeletal pain [Recovered/Resolved]
  - Sepsis [Recovered/Resolved]
  - Death [Fatal]
  - Hypoglycaemia [Recovered/Resolved]
  - Cough [Recovered/Resolved]

NARRATIVE: CASE EVENT DATE: 20160211
